FAERS Safety Report 8218675-8 (Version None)
Quarter: 2012Q1

REPORT INFORMATION
  Report Type: 
  Country: None (occurrence: None)
  Receive Date: 20120319
  Receipt Date: 20120308
  Transmission Date: 20120608
  Serious: Yes (Other)
  Sender: FDA-Public Use
  Company Number: GXKR2012DE001110

PATIENT

DRUGS (12)
  1. AMITRIPTYLINE HCL [Suspect]
     Dosage: 50 - 225 MG/DAY
     Route: 048
     Dates: start: 20110720, end: 20110814
  2. SEROQUEL [Suspect]
     Dosage: DAILY DOSE: 350 MG MILLIGRAM(S) EVERY DAY
     Route: 048
     Dates: start: 20100501, end: 20110629
  3. VERA ^BASF^ [Concomitant]
     Indication: PRODUCT USED FOR UNKNOWN INDICATION
     Dosage: 240 MG, QD
     Route: 048
  4. CARBAMAZEPINE [Suspect]
     Dosage: DAILY DOSE: 300 MG MILLIGRAM(S) EVERY DAY
     Route: 048
     Dates: end: 20110725
  5. AMITRIPTYLINE HCL [Suspect]
     Dosage: DAILY DOSE: 300 MG MILLIGRAM(S) EVERY DAY
     Route: 048
     Dates: start: 20110815
  6. VENLAFAXINE HYDROCHLORIDE [Suspect]
     Dosage: DAILY DOSE: 375 MG MILLIGRAM(S) EVERY DAY
     Route: 048
     Dates: start: 20100501, end: 20110630
  7. DIOVAN [Concomitant]
     Indication: HYPERTENSION
     Dosage: DAILY DOSE: 80 MG MILLIGRAM(S) EVERY DAY
     Route: 048
     Dates: start: 20100501
  8. AMITRIPTYLINE HCL [Suspect]
     Dosage: DAILY DOSE: 25 MG MILLIGRAM(S) EVERY DAY
     Route: 048
     Dates: start: 20100501, end: 20110719
  9. TILIDINALOXON [Suspect]
     Route: 048
  10. SEROQUEL [Suspect]
     Dosage: 100 - 300 MG/DAY
     Route: 048
     Dates: start: 20110630, end: 20110715
  11. VENLAFAXINE HYDROCHLORIDE [Suspect]
     Dosage: 300 MG, UNK
     Route: 048
     Dates: start: 20100701, end: 20110710
  12. CARBAMAZEPINE [Suspect]
     Dosage: DAILY DOSE: 400 MG MILLIGRAM(S) EVERY DAY
     Route: 048
     Dates: start: 20110726

REACTIONS (1)
  - WEIGHT INCREASED [None]
